FAERS Safety Report 8375766-9 (Version None)
Quarter: 2012Q2

REPORT INFORMATION
  Report Type: 
  Country: None (occurrence: None)
  Receive Date: 20120518
  Receipt Date: 20120518
  Transmission Date: 20120825
  Serious: Yes (Other)
  Sender: FDA-Public Use
  Company Number: None

PATIENT
  Sex: Female
  Weight: 100.6985 kg

DRUGS (1)
  1. NORDITROPIN FLEXPRO [Suspect]
     Indication: HYPOTHALAMO-PITUITARY DISORDER
     Dosage: 0.4MG DAILY
     Dates: start: 20120301, end: 20120516

REACTIONS (1)
  - ALOPECIA [None]
